FAERS Safety Report 15084791 (Version 1)
Quarter: 2018Q2

REPORT INFORMATION
  Report Type: Spontaneous
  Country: US (occurrence: US)
  Receive Date: 20180608
  Receipt Date: 20180608
  Transmission Date: 20180711
  Serious: No
  Sender: FDA-Public Use
  Company Number: None

PATIENT
  Age: 76 Year
  Sex: Female

DRUGS (1)
  1. GLATIRAMER PFS INJ (/BOX) [Suspect]
     Active Substance: GLATIRAMER ACETATE
     Dates: start: 20180410, end: 20180608

REACTIONS (3)
  - Injection site pain [None]
  - Skin irritation [None]
  - Pain [None]

NARRATIVE: CASE EVENT DATE: 20180607
